FAERS Safety Report 15892194 (Version 1)
Quarter: 2019Q1

REPORT INFORMATION
  Report Type: Other
  Country: US (occurrence: US)
  Receive Date: 20190130
  Receipt Date: 20190130
  Transmission Date: 20190417
  Serious: Yes (Hospitalization)
  Sender: FDA-Public Use
  Company Number: US-STASON PHARMACEUTICALS, INC.-2061962

PATIENT
  Age: 14 Year
  Sex: Male
  Weight: 68 kg

DRUGS (1)
  1. MERCAPTOPURINE. [Suspect]
     Active Substance: MERCAPTOPURINE

REACTIONS (10)
  - Neutropenia [Recovered/Resolved]
  - Fatigue [Recovered/Resolved]
  - Pancreatitis acute [Recovered/Resolved]
  - Hypoalbuminaemia [None]
  - Anaemia [Recovered/Resolved]
  - Gastroenteritis [Recovered/Resolved]
  - Weight decreased [None]
  - Febrile neutropenia [Recovered/Resolved]
  - Decreased appetite [Recovered/Resolved]
  - Hypertension [Recovered/Resolved]
